FAERS Safety Report 5124453-9 (Version None)
Quarter: 2006Q4

REPORT INFORMATION
  Report Type: 
  Country: None (occurrence: None)
  Receive Date: 20060816
  Receipt Date: 20060502
  Transmission Date: 20070319
  Serious: No
  Sender: FDA-Public Use
  Company Number: USA041183950

PATIENT
  Age: 66 Year
  Sex: Male
  Weight: 113.6 kg

DRUGS (3)
  1. CIALIS [Suspect]
     Indication: DRUG USE FOR UNKNOWN INDICATION
     Dosage: 40 MG, ORAL
     Route: 048
     Dates: start: 20041001
  2. LISINOPRIL [Concomitant]
  3. GLYBURIDE [Concomitant]

REACTIONS (2)
  - DRUG INEFFECTIVE [None]
  - PRESCRIBED OVERDOSE [None]
